FAERS Safety Report 8814428 (Version 1)
Quarter: 2012Q4

REPORT INFORMATION
  Report Type: Spontaneous
  Country: US (occurrence: None)
  Receive Date: 20120927
  Receipt Date: 20120927
  Transmission Date: 20130627
  Serious: Yes (Hospitalization)
  Sender: FDA-Public Use
  Company Number: None

PATIENT
  Age: 76 Year
  Sex: Female
  Weight: 50.1 kg

DRUGS (8)
  1. TARCEVA [Suspect]
     Indication: LUNG CANCER STAGE IV
     Route: 048
     Dates: start: 20120828
  2. UNSPECIFIED [Suspect]
     Indication: LUNG CANCER STAGE IV
     Dosage: 200 MG 5 DAYS ON , 2 DAYS AFT. ORAL
     Route: 048
     Dates: start: 20120911
  3. DESYREL [Concomitant]
  4. BENADRYL [Concomitant]
  5. ZOFRAN [Concomitant]
  6. FOLIC ACID [Concomitant]
  7. VITAMIN E [Concomitant]
  8. ATIVAN [Concomitant]

REACTIONS (1)
  - Pulmonary embolism [None]
